FAERS Safety Report 11582351 (Version 1)
Quarter: 2015Q4

REPORT INFORMATION
  Report Type: Spontaneous
  Country: US (occurrence: US)
  Receive Date: 20151001
  Receipt Date: 20151001
  Transmission Date: 20160304
  Serious: No
  Sender: FDA-Public Use
  Company Number: US-ROCHE-677887

PATIENT
  Age: 45 Year
  Sex: Female
  Weight: 75.8 kg

DRUGS (2)
  1. COPEGUS [Suspect]
     Active Substance: RIBAVIRIN
     Indication: HEPATITIS C
     Dosage: DIVIDED DOSES
     Route: 065
  2. PEGASYS [Suspect]
     Active Substance: PEGINTERFERON ALFA-2A
     Indication: HEPATITIS C
     Dosage: FORM REPORTED AS PREFILLED SYRINGE
     Route: 065

REACTIONS (6)
  - Pain in extremity [Unknown]
  - Headache [Unknown]
  - Dry mouth [Unknown]
  - Pruritus generalised [Unknown]
  - Pyrexia [Unknown]
  - Productive cough [Not Recovered/Not Resolved]

NARRATIVE: CASE EVENT DATE: 200910
